FAERS Safety Report 22954602 (Version 2)
Quarter: 2024Q3

REPORT INFORMATION
  Report Type: Spontaneous
  Country: CN (occurrence: CN)
  Receive Date: 20230918
  Receipt Date: 20240703
  Transmission Date: 20241017
  Serious: Yes (Hospitalization, Other)
  Sender: GLAXOSMITHKLINE
  Company Number: CN-GLAXOSMITHKLINE-CN2023GSK127213

PATIENT

DRUGS (2)
  1. ZEJULA [Suspect]
     Active Substance: NIRAPARIB
     Indication: Ovarian cancer
     Dosage: 200 MG, QD (EVERY NIGHT)
     Route: 048
     Dates: start: 202102, end: 20230514
  2. ZEJULA [Suspect]
     Active Substance: NIRAPARIB
     Dosage: 200 MG, QD(EVERY NIGHT)
     Route: 048
     Dates: start: 202306

REACTIONS (4)
  - Pneumonia [Recovered/Resolved]
  - COVID-19 [Recovered/Resolved with Sequelae]
  - Herpes zoster [Recovering/Resolving]
  - Pyrexia [Recovered/Resolved]

NARRATIVE: CASE EVENT DATE: 20230514
